FAERS Safety Report 8453556-6 (Version None)
Quarter: 2012Q2

REPORT INFORMATION
  Report Type: 
  Country: None (occurrence: None)
  Receive Date: 20120620
  Receipt Date: 20120620
  Transmission Date: 20120825
  Serious: Yes (Other)
  Sender: FDA-Public Use
  Company Number: CA-PFIZER INC-2010022797

PATIENT
  Age: 71 Year
  Sex: Male

DRUGS (4)
  1. ATENOLOL [Concomitant]
     Dosage: 100 MG, 1X/DAY
  2. VERAPAMIL HCL [Suspect]
     Dosage: 240 MG, 1X/DAY
  3. DILTIAZEM [Concomitant]
     Dosage: 300 MG, 1X/DAY
  4. METOPROLOL [Concomitant]
     Dosage: 100 MG, 2X/DAY

REACTIONS (2)
  - TOXICITY TO VARIOUS AGENTS [None]
  - CARDIOGENIC SHOCK [None]
